FAERS Safety Report 17866831 (Version 2)
Quarter: 2020Q2

REPORT INFORMATION
  Report Type: Report from Study
  Country: None (occurrence: PR)
  Receive Date: 20200605
  Receipt Date: 20200623
  Transmission Date: 20200714
  Serious: Yes (Other)
  Sender: FDA-Public Use
  Company Number: PR-ABBVIE-20K-131-3430823-00

PATIENT
  Sex: Female
  Weight: 58.57 kg

DRUGS (2)
  1. HUMIRA [Suspect]
     Active Substance: ADALIMUMAB
     Indication: RHEUMATOID ARTHRITIS
     Route: 058
     Dates: start: 20181001
  2. HUMIRA [Suspect]
     Active Substance: ADALIMUMAB
     Indication: RHEUMATOID ARTHRITIS
     Route: 058

REACTIONS (7)
  - Carotid artery occlusion [Recovering/Resolving]
  - Fatigue [Not Recovered/Not Resolved]
  - Intracranial mass [Not Recovered/Not Resolved]
  - Family stress [Unknown]
  - Cough [Not Recovered/Not Resolved]
  - Blindness transient [Recovered/Resolved]
  - Anxiety [Recovering/Resolving]

NARRATIVE: CASE EVENT DATE: 201912
